FAERS Safety Report 8349596-8 (Version None)
Quarter: 2012Q2

REPORT INFORMATION
  Report Type: 
  Country: None (occurrence: None)
  Receive Date: 20120510
  Receipt Date: 20120504
  Transmission Date: 20120825
  Serious: Yes (Hospitalization, Other)
  Sender: FDA-Public Use
  Company Number: PHHY2012MX034041

PATIENT
  Sex: Female

DRUGS (7)
  1. AMARYL [Concomitant]
     Indication: DIABETES MELLITUS
     Dosage: 1 DF, DAILY
     Dates: start: 20120201
  2. DIOVAN [Suspect]
     Indication: HYPERTENSION
     Dosage: 1 DF, DAILY
     Dates: start: 20110401, end: 20120401
  3. MICCIL [Concomitant]
     Indication: POLYURIA
     Dosage: 1 DF, DAILY
     Dates: start: 20100801
  4. LOSARTAN POTASSIUM [Concomitant]
     Indication: BLOOD PRESSURE
     Dosage: 2 DF, DAILY
     Dates: start: 20100101
  5. ZYLOPRIM [Concomitant]
     Dosage: 1 DF, DAILY
     Dates: start: 20110101
  6. GALVUS MET [Suspect]
     Indication: DIABETES MELLITUS
     Dosage: 2 DF, DAILY
     Dates: start: 20110401
  7. VENALOT (COUMARIN) [Concomitant]
     Indication: CARDIOVASCULAR DISORDER
     Dosage: 2 DF, DAILY
     Dates: start: 20110801

REACTIONS (2)
  - BLOOD PRESSURE INCREASED [None]
  - CHEST DISCOMFORT [None]
